FAERS Safety Report 9657370 (Version 1)
Quarter: 2013Q4

REPORT INFORMATION
  Report Type: Report from Study
  Country: US (occurrence: US)
  Receive Date: 20131030
  Receipt Date: 20131030
  Transmission Date: 20140711
  Serious: Yes (Other)
  Sender: FDA-Public Use
  Company Number: US-ROCHE-1294230

PATIENT
  Age: 70 Year
  Sex: Female

DRUGS (11)
  1. AVASTIN [Suspect]
     Indication: DIABETIC RETINAL OEDEMA
     Route: 065
  2. NAPROXEN [Suspect]
     Indication: PRODUCT USED FOR UNKNOWN INDICATION
     Route: 065
  3. METFORMIN [Concomitant]
     Route: 065
  4. ALPRAZOLAM [Concomitant]
     Route: 065
  5. PRILOSEC [Concomitant]
     Route: 065
  6. XANAX [Concomitant]
  7. DILTIAZEM [Concomitant]
     Route: 065
  8. LISINOPRIL [Concomitant]
     Route: 065
  9. LANTUS [Concomitant]
     Dosage: 20 UNITS
     Route: 065
  10. ASPIRIN [Concomitant]
     Route: 065
  11. VICODIN [Concomitant]
     Route: 065

REACTIONS (13)
  - Ocular hyperaemia [Unknown]
  - Eye pruritus [Unknown]
  - Macular oedema [Unknown]
  - Eye pain [Unknown]
  - Photophobia [Unknown]
  - Lacrimation increased [Unknown]
  - Eye disorder [Unknown]
  - Photopsia [Unknown]
  - Visual acuity reduced [Unknown]
  - Headache [Unknown]
  - Vision blurred [Unknown]
  - Nasal congestion [Unknown]
  - Sinus congestion [Unknown]
